FAERS Safety Report 12398905 (Version 2)
Quarter: 2018Q1

REPORT INFORMATION
  Report Type: Spontaneous
  Country: CA (occurrence: CA)
  Receive Date: 20160524
  Receipt Date: 20180303
  Transmission Date: 20180508
  Serious: Yes (Hospitalization, Other)
  Sender: FDA-Public Use
  Company Number: CA-TEVA-661999USA

PATIENT
  Age: 57 Year
  Sex: Male
  Weight: 84 kg

DRUGS (15)
  1. CODEINE [Concomitant]
     Active Substance: CODEINE
  2. FUROSEMIDE. [Concomitant]
     Active Substance: FUROSEMIDE
  3. PANTOPRAZOLE [Concomitant]
     Active Substance: PANTOPRAZOLE
  4. PROCHLORPERAZINE. [Concomitant]
     Active Substance: PROCHLORPERAZINE
  5. TREANDA [Suspect]
     Active Substance: BENDAMUSTINE HYDROCHLORIDE
     Indication: DIFFUSE LARGE B-CELL LYMPHOMA
     Route: 065
     Dates: start: 20151103, end: 20151104
  6. AMLODIPINE [Concomitant]
     Active Substance: AMLODIPINE BESYLATE
  7. MAGNESIUM [Concomitant]
     Active Substance: MAGNESIUM
  8. SEPTRA DS [Concomitant]
     Active Substance: SULFAMETHOXAZOLE\TRIMETHOPRIM
  9. ASA [Concomitant]
     Active Substance: ASPIRIN
  10. NEUPOGEN [Concomitant]
     Active Substance: FILGRASTIM
  11. RITUXAN [Concomitant]
     Active Substance: RITUXIMAB
  12. HEPARIN SODIUM. [Concomitant]
     Active Substance: HEPARIN SODIUM
  13. OXAZEPAM. [Concomitant]
     Active Substance: OXAZEPAM
  14. DEXAMETHASONE. [Concomitant]
     Active Substance: DEXAMETHASONE
  15. BECLOMETHASONE [Concomitant]
     Active Substance: BECLOMETHASONE

REACTIONS (4)
  - Extremity necrosis [Not Recovered/Not Resolved]
  - Vasculitis [Not Recovered/Not Resolved]
  - Nasal septum perforation [Not Recovered/Not Resolved]
  - Necrosis [Not Recovered/Not Resolved]
